FAERS Safety Report 25050963 (Version 2)
Quarter: 2025Q1

REPORT INFORMATION
  Report Type: Report from Study
  Country: CO (occurrence: CO)
  Receive Date: 20250307
  Receipt Date: 20250321
  Transmission Date: 20250409
  Serious: Yes (Other)
  Sender: JOHNSON AND JOHNSON
  Company Number: CO-JNJFOC-20241260974

PATIENT
  Age: 68 Year
  Sex: Female
  Weight: 48 kg

DRUGS (1)
  1. SIMPONI [Suspect]
     Active Substance: GOLIMUMAB
     Indication: Rheumatoid arthritis
     Dosage: LAST APPLICATION DATE: 17/NOV/2024
     Route: 058
     Dates: start: 20210820

REACTIONS (4)
  - Gastric cyst [Recovered/Resolved]
  - Rheumatoid arthritis [Not Recovered/Not Resolved]
  - Oophorectomy [Recovering/Resolving]
  - Post procedural infection [Recovering/Resolving]

NARRATIVE: CASE EVENT DATE: 20241101
